FAERS Safety Report 14778697 (Version 4)
Quarter: 2020Q4

REPORT INFORMATION
  Report Type: Other
  Country: FR (occurrence: FR)
  Receive Date: 20180419
  Receipt Date: 20201023
  Transmission Date: 20210113
  Serious: Yes (Hospitalization, Other)
  Sender: FDA-Public Use
  Company Number: FR-ROCHE-2107618

PATIENT
  Age: 22 Year
  Sex: Male
  Weight: 66 kg

DRUGS (10)
  1. RITUXIMAB. [Concomitant]
     Active Substance: RITUXIMAB
     Route: 065
  2. SPECIAFOLDINE [Concomitant]
     Active Substance: FOLIC ACID
     Indication: PRODUCT USED FOR UNKNOWN INDICATION
  3. VALIUM [Suspect]
     Active Substance: DIAZEPAM
     Indication: PRODUCT USED FOR UNKNOWN INDICATION
     Dosage: MOST RECENT DOSE ON 11/MAR/2018
     Route: 065
     Dates: start: 20180308
  4. HUMIRA [Suspect]
     Active Substance: ADALIMUMAB
     Indication: PRODUCT USED FOR UNKNOWN INDICATION
     Route: 058
     Dates: start: 20160201
  5. LOXAPAC [Suspect]
     Active Substance: LOXAPINE
     Indication: PRODUCT USED FOR UNKNOWN INDICATION
     Dosage: MOST RECENT DOSE ON 11/MAR/2018
     Route: 065
     Dates: start: 20180308
  6. URBANYL [Suspect]
     Active Substance: CLOBAZAM
     Indication: PRODUCT USED FOR UNKNOWN INDICATION
     Route: 065
     Dates: start: 20180305
  7. LEPTICUR [Concomitant]
     Active Substance: TROPATEPINE HYDROCHLORIDE
     Indication: EXTRAPYRAMIDAL DISORDER
     Dates: start: 20180313
  8. IMETH [Concomitant]
     Active Substance: METHOTREXATE SODIUM
     Indication: PROPHYLAXIS
     Dates: start: 20160201
  9. INNOVAIR [Concomitant]
     Active Substance: BECLOMETHASONE DIPROPIONATE\FORMOTEROL
     Indication: ASTHMA
     Dates: start: 201605
  10. ACYCLOVIR. [Concomitant]
     Active Substance: ACYCLOVIR
     Indication: PRODUCT USED FOR UNKNOWN INDICATION
     Route: 042

REACTIONS (47)
  - Sinus tachycardia [Unknown]
  - Hypertension [Unknown]
  - Upper respiratory tract congestion [Unknown]
  - Immunosuppression [Unknown]
  - C-reactive protein increased [Unknown]
  - Use of accessory respiratory muscles [Unknown]
  - Activated partial thromboplastin time shortened [Unknown]
  - Mental disorder [Unknown]
  - Gastric disorder [Unknown]
  - Agitation [Not Recovered/Not Resolved]
  - Encephalitis [Recovered/Resolved]
  - White blood cell count increased [Unknown]
  - Tachycardia [Recovered/Resolved]
  - Platelet count increased [Unknown]
  - Catatonia [Unknown]
  - Meningitis aseptic [Unknown]
  - Generalised tonic-clonic seizure [Unknown]
  - Skin papilloma [Unknown]
  - Delirium [Unknown]
  - Dehydration [Unknown]
  - Aggression [Unknown]
  - Hypernatraemia [Unknown]
  - Dysphemia [Unknown]
  - Eosinophil count decreased [Unknown]
  - Extrapyramidal disorder [Unknown]
  - Blood potassium increased [Unknown]
  - Hypothermia [Recovered/Resolved]
  - Accident [Unknown]
  - Monocyte count increased [Unknown]
  - Mean cell haemoglobin increased [Unknown]
  - Haemoglobin increased [Unknown]
  - Neutrophil count increased [Unknown]
  - Hypertonia [Unknown]
  - Tachypnoea [Unknown]
  - Muscle spasms [Recovering/Resolving]
  - Blood creatinine increased [Unknown]
  - Vomiting [Unknown]
  - Neutrophilia [Unknown]
  - Epilepsy [Unknown]
  - Oxygen saturation decreased [Unknown]
  - Altered state of consciousness [Not Recovered/Not Resolved]
  - Aspartate aminotransferase increased [Unknown]
  - Glomerular filtration rate decreased [Unknown]
  - Blood bicarbonate decreased [Unknown]
  - Agitation [Recovered/Resolved]
  - Blood urea increased [Unknown]
  - Blood fibrinogen increased [Unknown]

NARRATIVE: CASE EVENT DATE: 2018
